FAERS Safety Report 12561029 (Version 1)
Quarter: 2016Q3

REPORT INFORMATION
  Report Type: Spontaneous
  Country: JP (occurrence: JP)
  Receive Date: 20160715
  Receipt Date: 20160715
  Transmission Date: 20161109
  Serious: Yes (Other)
  Sender: FDA-Public Use
  Company Number: JP-MYLANLABS-2016M1029056

PATIENT

DRUGS (2)
  1. TENOMIN [Concomitant]
     Dosage: UNK
     Route: 048
  2. EPINEPHRINE. [Suspect]
     Active Substance: EPINEPHRINE
     Indication: ANAPHYLACTIC SHOCK
     Dosage: 0.3 MG SINGLE
     Route: 030

REACTIONS (1)
  - Drug ineffective [Recovered/Resolved]
